FAERS Safety Report 18333856 (Version 1)
Quarter: 2020Q3

REPORT INFORMATION
  Report Type: Spontaneous
  Country: US (occurrence: US)
  Receive Date: 20200930
  Receipt Date: 20200930
  Transmission Date: 20201103
  Serious: Yes (Other)
  Sender: FDA-Public Use
  Company Number: None

PATIENT
  Age: 76 Year
  Sex: Male
  Weight: 83.25 kg

DRUGS (7)
  1. PANTOPRAZOLE [Concomitant]
     Active Substance: PANTOPRAZOLE
  2. LISINOPRIL. [Concomitant]
     Active Substance: LISINOPRIL
  3. CIPROFLOXACIN. [Suspect]
     Active Substance: CIPROFLOXACIN
     Indication: DIVERTICULITIS
     Dosage: ?          QUANTITY:1 TABLET(S);OTHER FREQUENCY:EVENING;?
     Route: 048
     Dates: start: 20200924, end: 20200924
  4. ATORVASTATIN [Concomitant]
     Active Substance: ATORVASTATIN
  5. EZETIMIBE. [Concomitant]
     Active Substance: EZETIMIBE
  6. IRON [Concomitant]
     Active Substance: IRON
  7. COLACE [Concomitant]
     Active Substance: DOCUSATE SODIUM

REACTIONS (5)
  - Asthenia [None]
  - Hypotension [None]
  - Heart rate increased [None]
  - Dizziness [None]
  - Product complaint [None]

NARRATIVE: CASE EVENT DATE: 20200924
